FAERS Safety Report 5422260-0 (Version None)
Quarter: 2007Q3

REPORT INFORMATION
  Report Type: 
  Country: None (occurrence: None)
  Receive Date: 20070822
  Receipt Date: 20070820
  Transmission Date: 20080115
  Serious: Yes (Hospitalization)
  Sender: FDA-Public Use
  Company Number: FR-AVENTIS-200712612FR

PATIENT
  Age: 81 Year
  Sex: Male

DRUGS (4)
  1. LASIX [Suspect]
     Route: 048
     Dates: end: 20070628
  2. GELDENE [Suspect]
     Indication: GOUT
     Route: 003
     Dates: start: 20070601, end: 20070601
  3. BURINEX [Suspect]
     Indication: DRUG USE FOR UNKNOWN INDICATION
     Dates: start: 20070720, end: 20070724
  4. ALLOPURINOL [Concomitant]
     Dates: start: 20070512, end: 20070703

REACTIONS (5)
  - DRUG DISPENSING ERROR [None]
  - ECZEMA [None]
  - PHOTOSENSITIVITY REACTION [None]
  - RASH PAPULAR [None]
  - TOXIC SKIN ERUPTION [None]
